FAERS Safety Report 9259434 (Version 1)
Quarter: 2013Q2

REPORT INFORMATION
  Report Type: Report from Study
  Country: DE (occurrence: DE)
  Receive Date: 20130427
  Receipt Date: 20130427
  Transmission Date: 20140414
  Serious: Yes (Life-Threatening, Hospitalization)
  Sender: FDA-Public Use
  Company Number: DE-ROCHE-1217656

PATIENT
  Age: 83 Year
  Sex: Male
  Weight: 58.6 kg

DRUGS (1)
  1. METHOXY POLYETHYLENE GLYCOL-EPOETIN BETA [Suspect]
     Indication: PRODUCT USED FOR UNKNOWN INDICATION
     Dosage: DATE OF LAST DOSE PRIOR TO SAE: 27/FEB/2013
     Route: 058
     Dates: start: 20101217

REACTIONS (3)
  - Mobility decreased [Recovering/Resolving]
  - Fall [Unknown]
  - Immobile [Recovering/Resolving]
